FAERS Safety Report 9148279 (Version 2)
Quarter: 2013Q1

REPORT INFORMATION
  Report Type: Spontaneous
  Country: IQ (occurrence: IQ)
  Receive Date: 20130308
  Receipt Date: 20130319
  Transmission Date: 20140127
  Serious: Yes (Other)
  Sender: FDA-Public Use
  Company Number: IQ-RANBAXY-2013RR-65796

PATIENT
  Age: 65 Year
  Sex: Female

DRUGS (4)
  1. AMLODIPINE [Suspect]
     Indication: HYPERTENSION
     Dosage: 5 MG/DAY
     Route: 048
  2. FUROSEMIDE [Suspect]
     Indication: HYPERTENSION
     Dosage: 20 MG, BID, INJECTION
     Route: 065
  3. DICLOFENAC [Suspect]
     Indication: GASTROINTESTINAL INFECTION
     Dosage: 75 MG, BID, INJECTION
     Route: 065
  4. CIPROFLOXACIN [Suspect]
     Indication: GASTROINTESTINAL INFECTION
     Dosage: 200 MG, BID
     Route: 042

REACTIONS (1)
  - Stevens-Johnson syndrome [Unknown]
